FAERS Safety Report 5487859-4 (Version None)
Quarter: 2007Q4

REPORT INFORMATION
  Report Type: 
  Country: None (occurrence: None)
  Receive Date: 20071017
  Receipt Date: 20071004
  Transmission Date: 20080405
  Serious: Yes (Hospitalization)
  Sender: FDA-Public Use
  Company Number: JP-NOVOPROD-268003

PATIENT
  Age: 60 Year
  Sex: Male
  Weight: 65 kg

DRUGS (3)
  1. NOVORAPID 30 MIX CHU FLEXPEN [Suspect]
     Indication: INSULIN-REQUIRING TYPE II DIABETES MELLITUS
     Dosage: 28 IU, QD
     Route: 058
     Dates: start: 20060801, end: 20060901
  2. NOVOLIN R [Suspect]
     Dosage: 18 IU, QD
     Route: 058
     Dates: start: 20020101, end: 20060801
  3. NOVORAPID CHU FLEXPEN [Suspect]
     Dosage: UNK, UNK
     Route: 058
     Dates: start: 20060901

REACTIONS (2)
  - DIABETES MELLITUS INADEQUATE CONTROL [None]
  - FIBULA FRACTURE [None]
